FAERS Safety Report 25048362 (Version 1)
Quarter: 2025Q1

REPORT INFORMATION
  Report Type: Report from Study
  Country: US (occurrence: US)
  Receive Date: 20250307
  Receipt Date: 20250307
  Transmission Date: 20250408
  Serious: Yes (Other)
  Sender: ABBVIE
  Company Number: US-ABBVIE-6069580

PATIENT
  Sex: Female

DRUGS (2)
  1. RINVOQ [Suspect]
     Active Substance: UPADACITINIB
     Indication: Rheumatoid arthritis
     Route: 048
     Dates: start: 20241223
  2. RINVOQ [Suspect]
     Active Substance: UPADACITINIB
     Indication: Rheumatoid arthritis
     Route: 048

REACTIONS (8)
  - Hepatic cirrhosis [Unknown]
  - Hepatic steatosis [Unknown]
  - Malaise [Unknown]
  - Respiratory tract infection [Not Recovered/Not Resolved]
  - Influenza [Unknown]
  - Acne cystic [Unknown]
  - Illness [Recovered/Resolved]
  - Respiratory tract congestion [Unknown]
